FAERS Safety Report 5073482-2 (Version None)
Quarter: 2006Q3

REPORT INFORMATION
  Report Type: 
  Country: None (occurrence: None)
  Receive Date: 20060803
  Receipt Date: 20060719
  Transmission Date: 20061208
  Serious: Yes (Hospitalization)
  Sender: FDA-Public Use
  Company Number: PHBS2006JP10798

PATIENT
  Age: 51 Year
  Sex: Male

DRUGS (4)
  1. BASILIXIMAB (BASILIXIMAB) VIAL [Suspect]
     Indication: RENAL TRANSPLANT
     Dates: start: 20040303
  2. METHYLPREDNISOLONE (NGX) (METHYLPREDNISOLONE) [Suspect]
     Indication: RENAL TRANSPLANT
  3. TACROLIMUS (TACROLIMUS) [Suspect]
     Indication: RENAL TRANSPLANT
  4. MYCOPHENOLATE MOFETIL [Suspect]
     Indication: RENAL TRANSPLANT

REACTIONS (4)
  - FEELING HOT [None]
  - LYMPHOPROLIFERATIVE DISORDER [None]
  - METASTASES TO LUNG [None]
  - T-CELL LYMPHOMA [None]
